FAERS Safety Report 7243432-9 (Version None)
Quarter: 2010Q4

REPORT INFORMATION
  Report Type: 
  Country: None (occurrence: None)
  Receive Date: 20101130
  Receipt Date: 20090831
  Transmission Date: 20110411
  Serious: Yes (Hospitalization)
  Sender: FDA-Public Use
  Company Number: 2009SP023242

PATIENT
  Age: 36 Year
  Sex: Female
  Weight: 87.9978 kg

DRUGS (1)
  1. NUVARING [Suspect]
     Indication: CONTRACEPTION
     Dates: start: 20070719, end: 20070815

REACTIONS (1)
  - DEEP VEIN THROMBOSIS [None]
